FAERS Safety Report 7873776-9 (Version None)
Quarter: 2011Q4

REPORT INFORMATION
  Report Type: 
  Country: None (occurrence: None)
  Receive Date: 20111030
  Receipt Date: 20110510
  Transmission Date: 20120403
  Serious: No
  Sender: FDA-Public Use
  Company Number: US-AMGEN-USASP2011024354

PATIENT
  Sex: Female

DRUGS (2)
  1. ENBREL [Suspect]
     Indication: RHEUMATOID ARTHRITIS
     Dosage: 25 MG, UNK
     Dates: start: 20030601, end: 20110418
  2. HUMIRA [Concomitant]

REACTIONS (3)
  - RHEUMATOID ARTHRITIS [None]
  - SINUSITIS [None]
  - MOBILITY DECREASED [None]
